FAERS Safety Report 26157834 (Version 1)
Quarter: 2025Q4

REPORT INFORMATION
  Report Type: Spontaneous
  Country: US (occurrence: None)
  Receive Date: 20251215
  Receipt Date: 20251215
  Transmission Date: 20260118
  Serious: Yes (Hospitalization)
  Sender: FDA-CTU
  Company Number: None

PATIENT
  Age: 74 Year
  Sex: Male

DRUGS (1)
  1. DURVALUMAB [Suspect]
     Active Substance: DURVALUMAB
     Indication: Neoplasm malignant
     Dates: start: 20250324, end: 20251029

REACTIONS (6)
  - Pneumonitis [None]
  - Productive cough [None]
  - Nausea [None]
  - Dizziness [None]
  - Constipation [None]
  - Oropharyngeal pain [None]

NARRATIVE: CASE EVENT DATE: 20251030
